FAERS Safety Report 7070334-3 (Version None)
Quarter: 2010Q4

REPORT INFORMATION
  Report Type: 
  Country: None (occurrence: None)
  Receive Date: 20101028
  Receipt Date: 20101006
  Transmission Date: 20110411
  Serious: No
  Sender: FDA-Public Use
  Company Number: US-WYE-H18044810

PATIENT
  Age: 44 Year
  Sex: Female
  Weight: 49.94 kg

DRUGS (3)
  1. ADVIL [Suspect]
     Indication: PAIN
     Dosage: 1 CAPSULE EVERY
     Route: 048
     Dates: start: 20101005, end: 20101005
  2. ADVIL [Suspect]
     Indication: INSOMNIA
  3. NASONEX [Concomitant]

REACTIONS (2)
  - HEADACHE [None]
  - SOMNOLENCE [None]
